FAERS Safety Report 15797174 (Version 1)
Quarter: 2019Q1

REPORT INFORMATION
  Report Type: Spontaneous
  Country: US (occurrence: US)
  Receive Date: 20190108
  Receipt Date: 20190108
  Transmission Date: 20190417
  Serious: No
  Sender: FDA-Public Use
  Company Number: US-JNJFOC-20180121174

PATIENT
  Age: 36 Year
  Sex: Female
  Weight: 84.37 kg

DRUGS (9)
  1. SEROQUEL [Concomitant]
     Active Substance: QUETIAPINE FUMARATE
     Route: 065
  2. ROBAXIN [Concomitant]
     Active Substance: METHOCARBAMOL
     Route: 065
  3. STELARA [Suspect]
     Active Substance: USTEKINUMAB
     Indication: PSORIASIS
     Route: 058
     Dates: start: 201712
  4. TRILIPIX [Concomitant]
     Active Substance: FENOFIBRIC ACID
     Route: 065
  5. PENNSAID [Concomitant]
     Active Substance: DICLOFENAC SODIUM
     Route: 058
  6. LOPRESSOR [Concomitant]
     Active Substance: METOPROLOL TARTRATE
     Route: 058
  7. PROVENTIL [Concomitant]
     Active Substance: ALBUTEROL
     Route: 065
  8. RESTORIL [Concomitant]
     Active Substance: TEMAZEPAM
     Route: 058
  9. MICROZIDE [Concomitant]
     Active Substance: HYDROCHLOROTHIAZIDE
     Route: 065

REACTIONS (1)
  - Rash [Unknown]

NARRATIVE: CASE EVENT DATE: 20180116
